FAERS Safety Report 24044938 (Version 1)
Quarter: 2024Q3

REPORT INFORMATION
  Report Type: Spontaneous
  Country: US (occurrence: None)
  Receive Date: 20240702
  Receipt Date: 20240702
  Transmission Date: 20241016
  Serious: Yes (Other)
  Sender: Public
  Company Number: None

PATIENT
  Age: 80 Year
  Sex: Female

DRUGS (15)
  1. AMBRISENTAN [Suspect]
     Active Substance: AMBRISENTAN
     Indication: Pulmonary hypertension
     Dosage: FREQUENCY : DAILY;?
     Route: 048
     Dates: start: 20211025
  2. SILDENAFIL [Concomitant]
  3. EPOETIN [Concomitant]
  4. ATORVASTATIN [Concomitant]
  5. CARVEDILOL [Concomitant]
  6. ALBUTEROL SULFATE [Concomitant]
     Active Substance: ALBUTEROL SULFATE
  7. cellecept [Concomitant]
  8. FAMOTIDINE [Concomitant]
  9. XARELTO [Concomitant]
  10. PREDNISONE [Concomitant]
  11. DILTIAZEM [Concomitant]
  12. FOLIC ACID [Concomitant]
  13. LASIX [Concomitant]
     Active Substance: FUROSEMIDE
  14. ASCORBIC ACID\IRON [Concomitant]
     Active Substance: ASCORBIC ACID\IRON
  15. VITAMIN B12 [Concomitant]
     Active Substance: CYANOCOBALAMIN

REACTIONS (3)
  - Cardiac failure congestive [None]
  - Cardiac failure acute [None]
  - Weight increased [None]

NARRATIVE: CASE EVENT DATE: 20240428
